FAERS Safety Report 16376067 (Version 1)
Quarter: 2019Q2

REPORT INFORMATION
  Report Type: Spontaneous
  Country: CZ (occurrence: CZ)
  Receive Date: 20190531
  Receipt Date: 20190531
  Transmission Date: 20190711
  Serious: Yes (Other)
  Sender: FDA-Public Use
  Company Number: CZ-EMD SERONO-9094137

PATIENT
  Sex: Female

DRUGS (6)
  1. GONAL-F [Suspect]
     Active Substance: FOLLITROPIN
     Indication: CONTROLLED OVARIAN STIMULATION
  2. EUTHYROX [Suspect]
     Active Substance: LEVOTHYROXINE SODIUM
     Indication: IMMUNOSUPPRESSANT DRUG THERAPY
  3. OVITRELLE [Suspect]
     Active Substance: CHORIOGONADOTROPIN ALFA
     Indication: CONTROLLED OVARIAN STIMULATION
     Dosage: 1 DAY PRIOR TO COLLECTION
  4. CETROTIDE [Suspect]
     Active Substance: CETRORELIX ACETATE
     Indication: CONTROLLED OVARIAN STIMULATION
     Dosage: FOR 3 DAYS AT THE END
  5. CLEXANE [Concomitant]
     Active Substance: ENOXAPARIN SODIUM
     Indication: ANTICOAGULANT THERAPY
  6. PREDNISONE. [Concomitant]
     Active Substance: PREDNISONE
     Indication: IMMUNOSUPPRESSANT DRUG THERAPY

REACTIONS (4)
  - Ovarian hyperstimulation syndrome [Unknown]
  - Flatulence [Recovered/Resolved]
  - Abdominal pain [Unknown]
  - Muscle spasms [Unknown]
